FAERS Safety Report 12401355 (Version 1)
Quarter: 2016Q2

REPORT INFORMATION
  Report Type: Spontaneous
  Country: JP (occurrence: JP)
  Receive Date: 20160525
  Receipt Date: 20160525
  Transmission Date: 20160815
  Serious: Yes (Hospitalization, Other)
  Sender: FDA-Public Use
  Company Number: JP-MYLANLABS-2016M1021591

PATIENT

DRUGS (8)
  1. OXALIPLATIN. [Concomitant]
     Active Substance: OXALIPLATIN
     Indication: RETROPERITONEAL CANCER
     Dosage: 130 MG/M2 DAY 10 (GETUG 13 DOSE-DENSE REGIMEN )
     Route: 065
  2. BLEOMYCIN [Concomitant]
     Active Substance: BLEOMYCIN SULFATE
     Indication: RETROPERITONEAL CANCER
     Dosage: 30 MG/M2 DAY 1 (GETUG 13 DOSE-DENSE REGIMEN )
     Route: 065
  3. BLEOMYCIN [Concomitant]
     Active Substance: BLEOMYCIN SULFATE
     Dosage: 25 MG/M2 DAY 10-14 CONTINUOUS INFUSION
     Route: 050
  4. CISPLATIN. [Suspect]
     Active Substance: CISPLATIN
     Dosage: 100 MG/M2 DAY 1
     Route: 065
  5. CISPLATIN. [Suspect]
     Active Substance: CISPLATIN
     Indication: RETROPERITONEAL CANCER
     Dosage: 120 MG/M2 DAY 1-5 (GETUG 13 DOSE-DENSE REGIMEN )
     Route: 065
  6. PACLITAXEL. [Concomitant]
     Active Substance: PACLITAXEL
     Indication: RETROPERITONEAL CANCER
     Dosage: 175 MG/M2 DAY 1 (GETUG 13 DOSE-DENSE REGIMEN )
     Route: 065
  7. IFOSFAMIDE. [Concomitant]
     Active Substance: IFOSFAMIDE
     Indication: RETROPERITONEAL CANCER
     Dosage: 2 MG/M2 DAY 10, 12 AND 14
     Route: 065
  8. ETOPOSIDE. [Concomitant]
     Active Substance: ETOPOSIDE
     Indication: RETROPERITONEAL CANCER
     Dosage: 100 MG/M2 DAY 1-5 (GETUG 13 DOSE-DENSE REGIMEN )
     Route: 065

REACTIONS (1)
  - Tumour lysis syndrome [Recovering/Resolving]
